FAERS Safety Report 4484265-6 (Version None)
Quarter: 2004Q4

REPORT INFORMATION
  Report Type: 
  Country: None (occurrence: None)
  Receive Date: 20041025
  Receipt Date: 20041013
  Transmission Date: 20050328
  Serious: Yes (Life-Threatening, Hospitalization)
  Sender: FDA-Public Use
  Company Number: ES-GLAXOSMITHKLINE-B0348892A

PATIENT
  Age: 39 Year
  Sex: Female

DRUGS (6)
  1. COMBIVIR [Suspect]
     Indication: HIV INFECTION
     Route: 048
     Dates: start: 20040101, end: 20040514
  2. SEPTRA [Suspect]
     Indication: PROPHYLAXIS
     Route: 048
     Dates: start: 20040101, end: 20040514
  3. VIRACEPT [Concomitant]
     Indication: HIV INFECTION
     Dosage: 250MG THREE TIMES PER DAY
     Route: 048
  4. RIVOTRIL [Concomitant]
     Indication: EPILEPSY
     Dosage: 2MG PER DAY
     Route: 048
  5. REXER [Concomitant]
     Dosage: 15MG PER DAY
     Route: 048
  6. SINOGAN [Concomitant]
     Indication: ANXIETY DISORDER
     Route: 048

REACTIONS (2)
  - DRUG INTERACTION [None]
  - PANCYTOPENIA [None]
